FAERS Safety Report 8312163-6 (Version None)
Quarter: 2012Q1

REPORT INFORMATION
  Report Type: 
  Country: None (occurrence: None)
  Receive Date: 20120315
  Receipt Date: 20110602
  Transmission Date: 20120608
  Serious: Yes (Hospitalization)
  Sender: FDA-Public Use
  Company Number: PHHY2011US40800

PATIENT
  Age: 54 Year
  Sex: Female
  Weight: 71.7 kg

DRUGS (14)
  1. MACRODANTIN [Concomitant]
  2. CELEXA [Concomitant]
  3. KLONOPIN [Concomitant]
  4. GILENYA [Suspect]
     Indication: MULTIPLE SCLEROSIS
     Dosage: 0.5 MG, QD, ORAL
     Route: 048
     Dates: start: 20110512, end: 20110512
  5. FLORINEF [Concomitant]
  6. VITAMIN D [Concomitant]
  7. CITRACAL (CALCIUM CITRAT [Concomitant]
  8. NEXIUM [Concomitant]
  9. MULTIVITAMIN [Concomitant]
  10. MAALOX (ALGELDRATE, MAGNESIUM HYDROXIDE) [Concomitant]
  11. ZANAFLEX [Concomitant]
  12. LYSINE (LYSINE) [Concomitant]
  13. FOLIC ACID [Concomitant]
  14. VIVELLE-DOT [Concomitant]

REACTIONS (10)
  - ASTHENIA [None]
  - FEELING ABNORMAL [None]
  - FATIGUE [None]
  - MIGRAINE [None]
  - ANXIETY [None]
  - DIZZINESS [None]
  - NAUSEA [None]
  - ATRIOVENTRICULAR BLOCK FIRST DEGREE [None]
  - MONOCYTE COUNT INCREASED [None]
  - SINUS BRADYCARDIA [None]
